FAERS Safety Report 23409371 (Version 1)
Quarter: 2024Q1

REPORT INFORMATION
  Report Type: Spontaneous
  Country: KR (occurrence: KR)
  Receive Date: 20240117
  Receipt Date: 20240117
  Transmission Date: 20240409
  Serious: Yes (Life-Threatening, Hospitalization)
  Sender: FDA-Public Use
  Company Number: KR-PFIZER INC-PV202400003904

PATIENT
  Age: 64 Year
  Sex: Male

DRUGS (1)
  1. SUNITINIB MALATE [Suspect]
     Active Substance: SUNITINIB MALATE
     Indication: Metastatic renal cell carcinoma
     Dosage: 50 MG, CYCLIC: 1X/DAY, FOR 2 WEEKS (FOLLOWED BY A WEEK OFF), 2-WEEK/1-WEEK REGIMEN
     Route: 048

REACTIONS (1)
  - Cholecystitis acute [Recovered/Resolved]
